FAERS Safety Report 21749147 (Version 1)
Quarter: 2022Q4

REPORT INFORMATION
  Report Type: Report from Study
  Country: US (occurrence: US)
  Receive Date: 20221219
  Receipt Date: 20221219
  Transmission Date: 20230113
  Serious: No
  Sender: FDA-Public Use
  Company Number: US-ABBVIE-22K-163-4422918-00

PATIENT
  Sex: Female

DRUGS (2)
  1. SKYRIZI [Suspect]
     Active Substance: RISANKIZUMAB-RZAA
     Indication: Psoriasis
     Dosage: SECOND REGIMEN
     Route: 058
  2. SKYRIZI [Suspect]
     Active Substance: RISANKIZUMAB-RZAA
     Dosage: FIRST REGIMEN
     Route: 058

REACTIONS (5)
  - Nausea [Recovering/Resolving]
  - Upper respiratory tract infection [Recovering/Resolving]
  - Psoriasis [Not Recovered/Not Resolved]
  - Headache [Recovering/Resolving]
  - Fungal infection [Not Recovered/Not Resolved]
